FAERS Safety Report 5135591-9 (Version None)
Quarter: 2006Q4

REPORT INFORMATION
  Report Type: 
  Country: None (occurrence: None)
  Receive Date: 20061026
  Receipt Date: 20061023
  Transmission Date: 20070319
  Serious: Yes (Death)
  Sender: FDA-Public Use
  Company Number: 2006AP05029

PATIENT
  Age: 73 Year
  Sex: Male

DRUGS (4)
  1. IRESSA [Suspect]
     Indication: LUNG ADENOCARCINOMA
     Route: 048
     Dates: start: 20061005, end: 20061013
  2. UNKNOWN DRUG (PREDNISOLONE) [Concomitant]
     Dates: start: 20061005
  3. CARBOPLATIN [Concomitant]
  4. GEMCITABINE [Concomitant]

REACTIONS (1)
  - INTERSTITIAL LUNG DISEASE [None]
